FAERS Safety Report 15984444 (Version 1)
Quarter: 2019Q1

REPORT INFORMATION
  Report Type: Spontaneous
  Country: FR (occurrence: FR)
  Receive Date: 20190220
  Receipt Date: 20190220
  Transmission Date: 20190418
  Serious: Yes (Disabling)
  Sender: FDA-Public Use
  Company Number: FR-PFIZER INC-2019076760

PATIENT
  Age: 54 Year
  Sex: Female

DRUGS (2)
  1. IMETH [Suspect]
     Active Substance: METHOTREXATE SODIUM
     Indication: ANKYLOSING SPONDYLITIS
     Dosage: 1 DF, WEEKLY
     Route: 048
     Dates: start: 20151109
  2. REMICADE [Suspect]
     Active Substance: INFLIXIMAB
     Indication: ANKYLOSING SPONDYLITIS
     Dosage: 5.5 MG/KG, (8 WK)
     Route: 042
     Dates: start: 20151109

REACTIONS (2)
  - Hypoacusis [Not Recovered/Not Resolved]
  - Product use in unapproved indication [Unknown]

NARRATIVE: CASE EVENT DATE: 20151109
